FAERS Safety Report 4384486-7 (Version None)
Quarter: 2004Q2

REPORT INFORMATION
  Report Type: 
  Country: None (occurrence: None)
  Receive Date: 20040624
  Receipt Date: 20020910
  Transmission Date: 20050107
  Serious: Yes (Hospitalization, Disabling)
  Sender: FDA-Public Use
  Company Number: US-MERCK-0209USA00998

PATIENT
  Age: 55 Year
  Sex: Male
  Weight: 91 kg

DRUGS (4)
  1. ALLOPURINOL [Concomitant]
     Indication: GOUT
     Route: 065
  2. PREVACID [Concomitant]
     Indication: GASTROOESOPHAGEAL REFLUX DISEASE
     Route: 065
  3. VIOXX [Suspect]
     Indication: LOCALISED OSTEOARTHRITIS
     Route: 048
     Dates: start: 20000101, end: 20010101
  4. VIOXX [Suspect]
     Indication: ARTHRITIS
     Route: 048
     Dates: start: 20000101, end: 20010101

REACTIONS (22)
  - ACUTE SINUSITIS [None]
  - AORTIC ATHEROSCLEROSIS [None]
  - AORTIC VALVE INCOMPETENCE [None]
  - AORTIC VALVE SCLEROSIS [None]
  - BLOOD PRESSURE INCREASED [None]
  - BRONCHITIS ACUTE [None]
  - CEREBELLAR INFARCTION [None]
  - CEREBROVASCULAR ACCIDENT [None]
  - DYSURIA [None]
  - EPIDERMAL NAEVUS [None]
  - HAEMATOSPERMIA [None]
  - HAEMORRHOIDAL HAEMORRHAGE [None]
  - MICTURITION URGENCY [None]
  - NEPHROLITHIASIS [None]
  - PHLEBOLITH [None]
  - PROSTATISM [None]
  - RENAL CYST [None]
  - SINUSITIS [None]
  - TRICUSPID VALVE INCOMPETENCE [None]
  - VASCULAR CALCIFICATION [None]
  - VERTIGO [None]
  - VOMITING [None]
